FAERS Safety Report 7785630-1 (Version None)
Quarter: 2011Q3

REPORT INFORMATION
  Report Type: 
  Country: None (occurrence: None)
  Receive Date: 20110929
  Receipt Date: 20110919
  Transmission Date: 20111222
  Serious: Yes (Other)
  Sender: FDA-Public Use
  Company Number: AT-AMGEN-AUTSP2011048659

PATIENT
  Age: 83 Year
  Sex: Female

DRUGS (4)
  1. CINACALCET HYDROCHLORIDE [Suspect]
     Dosage: 60 MG, Q12H
     Dates: start: 20110301
  2. CINACALCET HYDROCHLORIDE [Suspect]
     Dosage: 60 MG, QD
     Dates: start: 20110201
  3. CINACALCET HYDROCHLORIDE [Suspect]
     Indication: HYPERPARATHYROIDISM SECONDARY
     Dosage: 90 MG, Q12H
     Dates: start: 20110701
  4. CINACALCET HYDROCHLORIDE [Suspect]
     Dosage: 60 MG, Q8H

REACTIONS (2)
  - MYOCARDIAL INFARCTION [None]
  - ABDOMINAL DISCOMFORT [None]
